FAERS Safety Report 6064701-4 (Version None)
Quarter: 2009Q1

REPORT INFORMATION
  Report Type: 
  Country: None (occurrence: None)
  Receive Date: 20090204
  Receipt Date: 20080731
  Transmission Date: 20090719
  Serious: No
  Sender: FDA-Public Use
  Company Number: A0734987A

PATIENT
  Age: 53 Year
  Sex: Female
  Weight: 88.6 kg

DRUGS (2)
  1. ARIXTRA [Suspect]
     Dosage: 2.5MG PER DAY
     Route: 058
  2. PROTONIX [Concomitant]

REACTIONS (2)
  - GENITAL HAEMORRHAGE [None]
  - MENSTRUAL DISORDER [None]
